FAERS Safety Report 9442713 (Version 2)
Quarter: 2013Q3

REPORT INFORMATION
  Report Type: Spontaneous
  Country: IT (occurrence: IT)
  Receive Date: 20130806
  Receipt Date: 20130925
  Transmission Date: 20140515
  Serious: Yes (Hospitalization)
  Sender: FDA-Public Use
  Company Number: PHHY2013IT082274

PATIENT
  Age: 86 Year
  Sex: Male

DRUGS (4)
  1. FUROSEMIDE [Suspect]
     Indication: CARDIOMYOPATHY
     Dosage: 50 MG, QD
     Route: 048
     Dates: end: 20130628
  2. AMIODARONE [Suspect]
     Indication: CARDIOMYOPATHY
     Dosage: 200 MG, QD
     Route: 048
     Dates: start: 20130501, end: 20130620
  3. BISOPROLOL [Concomitant]
  4. WARFARIN [Concomitant]

REACTIONS (2)
  - Bradycardia [Recovering/Resolving]
  - Orthostatic hypotension [Recovering/Resolving]
